FAERS Safety Report 4277310-4 (Version None)
Quarter: 2004Q1

REPORT INFORMATION
  Report Type: 
  Country: None (occurrence: None)
  Receive Date: 20040121
  Receipt Date: 20040120
  Transmission Date: 20041129
  Serious: Yes (Death, Hospitalization, Other)
  Sender: FDA-Public Use
  Company Number: 03-01-0100

PATIENT
  Age: 46 Year
  Sex: Male

DRUGS (2)
  1. CLOZAPINE [Suspect]
     Indication: SCHIZOPHRENIA
     Dosage: 600MG QD ORAL
     Route: 048
     Dates: start: 20001201
  2. CHEMOTHERAPY [Concomitant]

REACTIONS (1)
  - LUNG NEOPLASM MALIGNANT [None]
